FAERS Safety Report 6815348-0 (Version None)
Quarter: 2010Q3

REPORT INFORMATION
  Report Type: 
  Country: None (occurrence: None)
  Receive Date: 20100702
  Receipt Date: 20100622
  Transmission Date: 20110219
  Serious: Yes (Hospitalization, Other)
  Sender: FDA-Public Use
  Company Number: US-ELI_LILLY_AND_COMPANY-US201006006621

PATIENT
  Sex: Female
  Weight: 87.982 kg

DRUGS (6)
  1. BYETTA [Suspect]
     Indication: TYPE 2 DIABETES MELLITUS
     Dosage: 5 UG, 2/D
     Route: 058
     Dates: start: 20060101
  2. BYETTA [Suspect]
     Dosage: 10 UG, 2/D
     Route: 058
     Dates: start: 20060101
  3. AVAPRO [Concomitant]
     Dosage: UNK, DAILY (1/D)
     Route: 048
  4. GLIMEPIRIDE [Concomitant]
     Indication: TYPE 2 DIABETES MELLITUS
     Route: 048
  5. ZOCOR [Concomitant]
     Route: 048
  6. LANTUS [Concomitant]
     Indication: TYPE 2 DIABETES MELLITUS
     Dosage: UNK, UNK
     Route: 058
     Dates: start: 20100101

REACTIONS (6)
  - BLOOD GLUCOSE INCREASED [None]
  - BREAST CANCER [None]
  - HOSPITALISATION [None]
  - OFF LABEL USE [None]
  - SLEEP APNOEA SYNDROME [None]
  - STRESS [None]
